FAERS Safety Report 20952027 (Version 1)
Quarter: 2022Q2

REPORT INFORMATION
  Report Type: Spontaneous
  Country: US (occurrence: US)
  Receive Date: 20220613
  Receipt Date: 20220613
  Transmission Date: 20220721
  Serious: No
  Sender: FDA-Public Use
  Company Number: US-ORGANON-O2206USA000814

PATIENT
  Sex: Female
  Weight: 52.154 kg

DRUGS (2)
  1. NUVARING [Suspect]
     Active Substance: ETHINYL ESTRADIOL\ETONOGESTREL
     Indication: Contraception
     Dosage: 1 NUVARING FOR 4 WEEKS
     Route: 067
     Dates: start: 202101
  2. NUVARING [Suspect]
     Active Substance: ETHINYL ESTRADIOL\ETONOGESTREL
     Indication: Contraception
     Dosage: 1 DOSAGE FORM
     Route: 067
     Dates: start: 20220605

REACTIONS (6)
  - Vaginal haemorrhage [Unknown]
  - Headache [Unknown]
  - Amenorrhoea [Unknown]
  - Incorrect product administration duration [Unknown]
  - Product storage error [Unknown]
  - Product prescribing error [Unknown]

NARRATIVE: CASE EVENT DATE: 20210101
